FAERS Safety Report 17146870 (Version 2)
Quarter: 2020Q1

REPORT INFORMATION
  Report Type: Report from Study
  Country: GB (occurrence: GB)
  Receive Date: 20191212
  Receipt Date: 20200106
  Transmission Date: 20200409
  Serious: Yes (Other)
  Sender: FDA-Public Use
  Company Number: PHHY2015GB006305

PATIENT
  Age: 42 Year
  Sex: Male

DRUGS (1)
  1. GILENYA [Suspect]
     Active Substance: FINGOLIMOD HYDROCHLORIDE
     Indication: MULTIPLE SCLEROSIS
     Dosage: UNK UNK, QD
     Route: 048
     Dates: start: 20131217, end: 20140601

REACTIONS (11)
  - Monocyte count increased [Unknown]
  - Haemoglobin increased [Unknown]
  - Ventricular hypokinesia [Not Recovered/Not Resolved]
  - Paraesthesia [Unknown]
  - Muscle spasms [Unknown]
  - Lymphocyte count decreased [Recovered/Resolved]
  - Dyspnoea [Unknown]
  - Haematocrit increased [Unknown]
  - Gamma-glutamyltransferase increased [Unknown]
  - Hypertension [Recovered/Resolved]
  - Alanine aminotransferase increased [Unknown]

NARRATIVE: CASE EVENT DATE: 20140124
